FAERS Safety Report 4817934-6 (Version None)
Quarter: 2005Q4

REPORT INFORMATION
  Report Type: 
  Country: None (occurrence: None)
  Receive Date: 20051102
  Receipt Date: 20051025
  Transmission Date: 20060501
  Serious: Yes (Hospitalization, Other)
  Sender: FDA-Public Use
  Company Number: 2005PK02001

PATIENT
  Age: 18775 Day
  Sex: Male

DRUGS (3)
  1. IRESSA [Suspect]
     Indication: GLIOBLASTOMA
     Route: 048
     Dates: start: 20050808, end: 20050916
  2. IRESSA [Suspect]
     Route: 048
     Dates: start: 20051007, end: 20051021
  3. DEPAKENE [Concomitant]

REACTIONS (1)
  - PNEUMONIA [None]
